FAERS Safety Report 6675104-3 (Version None)
Quarter: 2010Q2

REPORT INFORMATION
  Report Type: 
  Country: None (occurrence: None)
  Receive Date: 20100407
  Receipt Date: 20100325
  Transmission Date: 20101027
  Serious: Yes (Death, Hospitalization)
  Sender: FDA-Public Use
  Company Number: 009127

PATIENT
  Sex: Female

DRUGS (2)
  1. CERTOLIZUMAB PEGOL (CERTOLIZUMAB PEGOL) [Suspect]
     Indication: RHEUMATOID ARTHRITIS
     Dosage: 400 MG 1X/2 WEEKS, CDP870-050 SUBCUTANEOUS,  400  MG 1X/2 WEEKS SUBCUTANEOUS
     Route: 058
     Dates: start: 20051226, end: 20060613
  2. CERTOLIZUMAB PEGOL (CERTOLIZUMAB PEGOL) [Suspect]
     Indication: RHEUMATOID ARTHRITIS
     Dosage: 400 MG 1X/2 WEEKS, CDP870-050 SUBCUTANEOUS,  400  MG 1X/2 WEEKS SUBCUTANEOUS
     Route: 058
     Dates: start: 20060613

REACTIONS (1)
  - CEREBRAL HAEMORRHAGE [None]
